FAERS Safety Report 9120240 (Version 2)
Quarter: 2013Q2

REPORT INFORMATION
  Report Type: Spontaneous
  Country: SE (occurrence: SE)
  Receive Date: 20130226
  Receipt Date: 20130411
  Transmission Date: 20140414
  Serious: Yes (Hospitalization, Other)
  Sender: FDA-Public Use
  Company Number: SE-JNJFOC-20130212597

PATIENT
  Age: 73 Year
  Sex: Female

DRUGS (2)
  1. REMICADE [Suspect]
     Indication: RHEUMATOID ARTHRITIS
     Dosage: ONCE EVERY 8-9 WEEKS
     Route: 042
     Dates: start: 20060510, end: 20120829
  2. METHOTREXATE [Concomitant]
     Route: 065
     Dates: start: 20060510

REACTIONS (3)
  - Neoplasm malignant [Unknown]
  - Metastasis [Unknown]
  - Malignant respiratory tract neoplasm [Unknown]
